FAERS Safety Report 9536183 (Version 1)
Quarter: 2013Q3

REPORT INFORMATION
  Report Type: Spontaneous
  Country: US (occurrence: None)
  Receive Date: 20130917
  Receipt Date: 20130917
  Transmission Date: 20140515
  Serious: No
  Sender: FDA-Public Use
  Company Number: None

PATIENT
  Age: 76 Year
  Sex: Female
  Weight: 81.65 kg

DRUGS (9)
  1. ERTACZO [Suspect]
     Indication: FUNGAL SKIN INFECTION
     Dates: end: 20130903
  2. ATENOLOL [Concomitant]
  3. NIFEDIPINE ER [Concomitant]
  4. LOSARTAN [Concomitant]
  5. COD LIVER OIL [Concomitant]
  6. VITAMIN A [Suspect]
  7. VIT D [Concomitant]
  8. VIT E [Concomitant]
  9. ASPIRIN [Concomitant]

REACTIONS (5)
  - Skin discolouration [None]
  - Pruritus [None]
  - Burning sensation [None]
  - Haemorrhage [None]
  - Swelling [None]
